FAERS Safety Report 8494496-6 (Version None)
Quarter: 2012Q2

REPORT INFORMATION
  Report Type: 
  Country: None (occurrence: None)
  Receive Date: 20120405
  Receipt Date: 20090119
  Transmission Date: 20120825
  Serious: Yes (Other)
  Sender: FDA-Public Use
  Company Number: PHEH2008US08083

PATIENT
  Age: 69 Year
  Sex: Female
  Weight: 53.1 kg

DRUGS (3)
  1. VIVELLE [Concomitant]
  2. RECLAST [Suspect]
     Indication: OSTEOPOROSIS
     Dates: start: 20080501
  3. PRILOSEC [Concomitant]

REACTIONS (1)
  - BONE PAIN [None]
